FAERS Safety Report 11325533 (Version 1)
Quarter: 2015Q3

REPORT INFORMATION
  Report Type: Report from Study
  Country: KR (occurrence: KR)
  Receive Date: 20150731
  Receipt Date: 20150731
  Transmission Date: 20151125
  Serious: Yes (Death, Other)
  Sender: FDA-Public Use
  Company Number: KR-ACCORD-032523

PATIENT
  Age: 38 Year
  Sex: Male

DRUGS (1)
  1. ALLOPURINOL. [Suspect]
     Active Substance: ALLOPURINOL
     Indication: PROPHYLAXIS
     Dosage: MAINTENANCE DOSE: 300 MG/DAY?STARTING DOSE PER UNIT OF EGFR: 4.4 MG/ML/MIN

REACTIONS (5)
  - Pneumonia [Fatal]
  - Renal impairment [Unknown]
  - Drug reaction with eosinophilia and systemic symptoms [Unknown]
  - Rash maculo-papular [Unknown]
  - Pyrexia [Unknown]
